FAERS Safety Report 14256800 (Version 1)
Quarter: 2017Q4

REPORT INFORMATION
  Report Type: Report from Study
  Country: US (occurrence: BR)
  Receive Date: 20171206
  Receipt Date: 20171206
  Transmission Date: 20180321
  Serious: Yes (Hospitalization, Other)
  Sender: FDA-Public Use
  Company Number: US-SUNOVION-2017SUN005201

PATIENT
  Sex: Female
  Weight: 58 kg

DRUGS (13)
  1. INDACATEROL AND GLYCOPYRROLATE [Suspect]
     Active Substance: GLYCOPYRROLATE\INDACATEROL MALEATE
     Indication: CHRONIC OBSTRUCTIVE PULMONARY DISEASE
     Dosage: 1 DF (110 MCG + 50 MCG) QD VIA INHALATION (REGIMEN #1)
     Route: 055
     Dates: start: 2016
  2. ANORO ELLIPTA [Suspect]
     Active Substance: UMECLIDINIUM BROMIDE\VILANTEROL TRIFENATATE
     Indication: PRODUCT USED FOR UNKNOWN INDICATION
     Dosage: REGIMEN #1; ANORO (UMECLIDINIUM BROMIDE, VILANTEROL TRIFENATATE)
  3. LUCENTIS [Suspect]
     Active Substance: RANIBIZUMAB
     Indication: RETINAL DISORDER
  4. GLYCOPYRROLATE. [Suspect]
     Active Substance: GLYCOPYRROLATE
     Dosage: REGIMEN #1; SEEBRI BREEZHALER (GLYCOPYRRONIUM BROMIDE) CAPSULE; 1 DF, QD
  5. OXYGEN. [Suspect]
     Active Substance: OXYGEN
  6. INDACATEROL AND GLYCOPYRROLATE [Suspect]
     Active Substance: GLYCOPYRROLATE\INDACATEROL MALEATE
     Indication: EMPHYSEMA
     Dosage: 1 DF (110 MCG + 50 MCG) BID, (ONCE IN THE MORNING AND ONCE EARLY EVENING) VIA INHALATION(REGIMEN #2)
     Route: 055
  7. INDACATEROL [Suspect]
     Active Substance: INDACATEROL
     Dosage: 1 DF QD (ONBREZ (INDACATEROL) INHALATION POWDER, HARD CAPSULE); REGIMEN #1
  8. INDACATEROL AND GLYCOPYRROLATE [Suspect]
     Active Substance: GLYCOPYRROLATE\INDACATEROL MALEATE
     Dosage: 1 DF (110 MCG + 50 MCG) BID, (ONCE IN THE MORNING AND ONCE EARLY EVENING) VIA INHALATION(REGIMEN 3)
     Route: 055
     Dates: start: 201701, end: 201701
  9. LUCENTIS [Suspect]
     Active Substance: RANIBIZUMAB
     Indication: MACULAR DEGENERATION
  10. GLYCOPYRROLATE. [Suspect]
     Active Substance: GLYCOPYRROLATE
     Dosage: REGIMEN #2; SEEBRI BREEZHALER (GLYCOPYRRONIUM BROMIDE) CAPSULE; 1 DF, QD
     Dates: start: 201701
  11. AVASTIN [Concomitant]
     Active Substance: BEVACIZUMAB
  12. INDACATEROL [Suspect]
     Active Substance: INDACATEROL
     Dosage: 1 DF QD (ONBREZ (INDACATEROL) INHALATION POWDER, HARD CAPSULE); REGIMEN #2UNK
     Dates: start: 201701
  13. OXIMAX [Suspect]
     Active Substance: MOMETASONE FUROATE
     Indication: PRODUCT USED FOR UNKNOWN INDICATION
     Dosage: REGIMEN #1; OXIMAX (MOMETASONE FUROATE)

REACTIONS (12)
  - Oropharyngeal pain [Unknown]
  - Productive cough [Unknown]
  - Lung neoplasm malignant [Recovered/Resolved]
  - Inappropriate schedule of drug administration [Unknown]
  - Dyspnoea [Not Recovered/Not Resolved]
  - Fatigue [Not Recovered/Not Resolved]
  - Urinary tract infection [Unknown]
  - Drug ineffective [Unknown]
  - Alopecia [Recovering/Resolving]
  - Body height decreased [Unknown]
  - Pneumonia [Recovered/Resolved]
  - Muscle spasms [Recovering/Resolving]
